FAERS Safety Report 7358848-X (Version None)
Quarter: 2011Q1

REPORT INFORMATION
  Report Type: 
  Country: None (occurrence: None)
  Receive Date: 20110317
  Receipt Date: 20110219
  Transmission Date: 20110831
  Serious: Yes (Other)
  Sender: FDA-Public Use
  Company Number: B0701792A

PATIENT
  Sex: Female

DRUGS (5)
  1. ZOVIRAX [Suspect]
     Dosage: 2000MG PER DAY
     Route: 048
     Dates: start: 20110215, end: 20110219
  2. VOLTAREN [Concomitant]
     Route: 054
  3. POLITOSE [Concomitant]
     Route: 048
  4. LAC B [Concomitant]
     Dosage: 3G PER DAY
     Route: 048
  5. HALCION [Concomitant]
     Route: 048

REACTIONS (2)
  - MUSCULAR WEAKNESS [None]
  - ALTERED STATE OF CONSCIOUSNESS [None]
